FAERS Safety Report 13074023 (Version 3)
Quarter: 2017Q1

REPORT INFORMATION
  Report Type: Report from Study
  Country: CA (occurrence: CA)
  Receive Date: 20161229
  Receipt Date: 20170213
  Transmission Date: 20170428
  Serious: Yes (Other)
  Sender: FDA-Public Use
  Company Number: CA-UCBSA-2016049557

PATIENT
  Sex: Female

DRUGS (3)
  1. VOLTAREN [Concomitant]
     Active Substance: DICLOFENAC SODIUM
     Indication: PAIN
     Dosage: PILLS
  2. CERTOLIZUMAB PEGOL PSA [Suspect]
     Active Substance: CERTOLIZUMAB PEGOL
     Indication: PSORIATIC ARTHROPATHY
     Dosage: 400 MG, EV 2 WEEKS(QOW)X3
     Route: 058
     Dates: start: 20161101, end: 20161129
  3. CERTOLIZUMAB PEGOL PSA [Suspect]
     Active Substance: CERTOLIZUMAB PEGOL
     Dosage: 200 MG, EV 2 WEEKS(QOW)
     Route: 058
     Dates: start: 20161213

REACTIONS (11)
  - Drug ineffective [Unknown]
  - Insomnia [Unknown]
  - Muscle spasms [Unknown]
  - Eye colour change [Unknown]
  - Vision blurred [Unknown]
  - Psoriatic arthropathy [Unknown]
  - Sinusitis [Recovering/Resolving]
  - Unevaluable event [Unknown]
  - Joint swelling [Unknown]
  - Malaise [Unknown]
  - Feeling hot [Unknown]

NARRATIVE: CASE EVENT DATE: 2016
